FAERS Safety Report 5376585-8 (Version None)
Quarter: 2007Q3

REPORT INFORMATION
  Report Type: 
  Country: None (occurrence: None)
  Receive Date: 20070702
  Receipt Date: 20070621
  Transmission Date: 20080115
  Serious: Yes (Death, Hospitalization)
  Sender: FDA-Public Use
  Company Number: CA-MERCK-0706CAN00150

PATIENT
  Age: 70 Year
  Sex: Male

DRUGS (5)
  1. CANCIDAS [Suspect]
     Indication: FUNGAL INFECTION
     Route: 042
     Dates: start: 20050101
  2. VORICONAZOLE [Concomitant]
     Indication: FUNGAL INFECTION
     Route: 065
     Dates: start: 20050101
  3. MITOXANTRONE HYDROCHLORIDE [Concomitant]
     Indication: ACUTE MYELOID LEUKAEMIA
     Route: 065
  4. ETOPOSIDE [Concomitant]
     Indication: ACUTE MYELOID LEUKAEMIA
     Route: 065
  5. CYTARABINE [Concomitant]
     Indication: ACUTE MYELOID LEUKAEMIA
     Route: 065

REACTIONS (6)
  - CONDITION AGGRAVATED [None]
  - DEATH [None]
  - DRUG INEFFECTIVE [None]
  - FUNGAEMIA [None]
  - FUNGAL INFECTION [None]
  - LOCALISED INFECTION [None]
